FAERS Safety Report 4313624-7 (Version None)
Quarter: 2004Q1

REPORT INFORMATION
  Report Type: 
  Country: None (occurrence: None)
  Receive Date: 20040305
  Receipt Date: 20040219
  Transmission Date: 20041129
  Serious: Yes (Death)
  Sender: FDA-Public Use
  Company Number: M04-INT-024

PATIENT
  Age: 60 Year
  Sex: Female

DRUGS (2)
  1. INTEGRILIN [Suspect]
     Indication: CORONARY ANGIOPLASTY
     Dates: start: 20040213
  2. HEPARIN [Suspect]
     Indication: ANGIOPLASTY
     Dates: start: 20040213

REACTIONS (1)
  - THROMBOCYTOPENIA [None]
